FAERS Safety Report 7984838-X (Version None)
Quarter: 2011Q4

REPORT INFORMATION
  Report Type: 
  Country: None (occurrence: None)
  Receive Date: 20111216
  Receipt Date: 20111206
  Transmission Date: 20120403
  Serious: Yes (Hospitalization)
  Sender: FDA-Public Use
  Company Number: US-NOVOPROD-341313

PATIENT

DRUGS (16)
  1. HYDROCODONE BITARTRATE [Concomitant]
     Indication: PRODUCT USED FOR UNKNOWN INDICATION
     Dosage: 500 MG, BID
     Route: 065
  2. VITAMIN B12                        /00056201/ [Concomitant]
     Indication: PRODUCT USED FOR UNKNOWN INDICATION
     Dosage: UNK, QD IN THE MORNING
     Route: 065
  3. ANASTROZOLE [Concomitant]
     Indication: HORMONE THERAPY
     Dosage: 1 MG, QD
     Route: 065
  4. NOVOLOG [Suspect]
     Indication: TYPE 2 DIABETES MELLITUS
     Dosage: 10 U, TID; BEFORE EACH MEAL
     Route: 058
     Dates: start: 20100101
  5. LIPITOR [Concomitant]
     Indication: BLOOD CHOLESTEROL INCREASED
     Dosage: 80 MG, QD
     Route: 065
  6. RANITIDINE [Concomitant]
     Indication: GASTROOESOPHAGEAL REFLUX DISEASE
     Dosage: 150 MG, BID
     Route: 065
  7. METOPROLOL TARTRATE [Concomitant]
     Indication: HYPERTENSION
     Dosage: 25 MG, QD
     Route: 065
  8. LEVEMIR [Suspect]
     Indication: TYPE 2 DIABETES MELLITUS
     Dosage: 60 U, QD IN PM
     Route: 058
     Dates: start: 20100101
  9. PLAVIX [Concomitant]
     Indication: ANTICOAGULANT THERAPY
     Dosage: 75 MG, QD
     Route: 065
  10. XANAX [Suspect]
     Indication: ANXIETY
     Dosage: 0.5 MG, QD
     Route: 065
     Dates: end: 20110501
  11. ISOSORB                            /00586302/ [Concomitant]
     Indication: ANGINA PECTORIS
     Dosage: 30 MG, BID
     Route: 065
  12. POTASSIUM CHLORIDE [Concomitant]
     Indication: HYPOTENSION
     Dosage: 10 MG, BID
     Route: 065
  13. CALCIUM [Concomitant]
     Indication: CALCIUM DEFICIENCY
     Dosage: 64 MG, QD
     Route: 065
  14. ZETIA [Concomitant]
     Indication: BLOOD CHOLESTEROL DECREASED
     Dosage: 10 MG, QD
     Route: 065
  15. ASPIRIN [Concomitant]
     Indication: ANTICOAGULANT THERAPY
     Dosage: 81 MG, QD
     Route: 065
  16. VENLAFAXINE [Concomitant]
     Indication: ANXIETY
     Dosage: 150 MG, QD
     Route: 065
     Dates: start: 20110501

REACTIONS (1)
  - MENTAL DISORDER [None]
